FAERS Safety Report 8956962 (Version 1)
Quarter: 2012Q4

REPORT INFORMATION
  Report Type: 
  Country: DE (occurrence: DE)
  Receive Date: 20121210
  Receipt Date: 20121210
  Transmission Date: 20130627
  Serious: Yes (Hospitalization)
  Sender: FDA-Public Use
  Company Number: PHHY2012DE112994

PATIENT
  Age: 56 Year
  Sex: Male

DRUGS (4)
  1. CICLOSPORIN [Suspect]
     Indication: RENAL TRANSPLANT
  2. CICLOSPORIN [Suspect]
     Indication: IMMUNOSUPPRESSION
  3. MYCOPHENOLATE MOFETIL [Suspect]
     Indication: IMMUNOSUPPRESSION
  4. PREDNISOLONE SANDOZ [Suspect]
     Indication: IMMUNOSUPPRESSION

REACTIONS (7)
  - Pancreatitis necrotising [Unknown]
  - Sepsis [Unknown]
  - Pyrexia [Unknown]
  - Pseudomonas infection [Unknown]
  - Enterococcal infection [Unknown]
  - Gastric haemorrhage [Unknown]
  - Thromboangiitis obliterans [Unknown]
